FAERS Safety Report 18273606 (Version 3)
Quarter: 2020Q4

REPORT INFORMATION
  Report Type: Spontaneous
  Country: DE (occurrence: DE)
  Receive Date: 20200916
  Receipt Date: 20201110
  Transmission Date: 20210113
  Serious: Yes (Other)
  Sender: FDA-Public Use
  Company Number: DE-PFIZER INC-2020343639

PATIENT
  Age: 79 Year
  Sex: Female

DRUGS (14)
  1. TORASEMIDE [Concomitant]
     Active Substance: TORSEMIDE
     Dosage: 200 MG, 1X/DAY (DOSAGE 0.5-0-0 )
     Route: 048
  2. DABIGATRAN [Concomitant]
     Active Substance: DABIGATRAN
     Dosage: 110 MG, 2X/DAY(DOSAGE1-0-1)
     Route: 048
  3. NOVAMINSULFON [Concomitant]
     Active Substance: METAMIZOLE
     Dosage: 500 MG, 4X/DAY(DOSAGE 2-1-2-1 )
     Route: 048
  4. LEVOTHYROXINE. [Concomitant]
     Active Substance: LEVOTHYROXINE
     Dosage: 50 UG, 1X/DAY (DOSAGE 2-0-0 )
     Route: 048
  5. PREGABALIN. [Concomitant]
     Active Substance: PREGABALIN
     Dosage: 50 MG, 2X/DAY (DOSAGE 1-0-2 )
     Route: 048
  6. ALLOPURINOL. [Concomitant]
     Active Substance: ALLOPURINOL
     Dosage: 300 MG, 1X/DAY (DOSAGE 0-0-0.5 )
     Route: 048
  7. SPIRONOLACTONE. [Concomitant]
     Active Substance: SPIRONOLACTONE
     Dosage: 50 MG, 1X/DAY(DOSAGE 0.5-0-0 )
     Route: 048
  8. LINEZOLID. [Suspect]
     Active Substance: LINEZOLID
     Indication: INTERVERTEBRAL DISCITIS
     Dosage: 600 MG (TWO DOSES)
     Route: 048
  9. SILDENAFIL. [Concomitant]
     Active Substance: SILDENAFIL
     Dosage: 20 MG, 1X/DAY (DOSAGE0-0-2 )
     Route: 048
  10. MACITENTAN [Concomitant]
     Active Substance: MACITENTAN
     Dosage: 10 MG, 1X/DAY (DOSAGE1-0-0 )
     Route: 048
  11. ATORVASTATIN [Concomitant]
     Active Substance: ATORVASTATIN
     Dosage: 40 MG, 1X/DAY(DOSAGE 0-0-0.5 )
     Route: 048
  12. DULOXETINE. [Concomitant]
     Active Substance: DULOXETINE
     Dosage: 30 MG, 1X/DAY(DOSAGE 1-0-0 )
     Route: 048
  13. MACROGOL [Concomitant]
     Active Substance: POLYETHYLENE GLYCOLS
     Dosage: UNK UNK, 1X/DAY(DOSAGE 1-0-0 )
     Route: 048
  14. HYDROMORPHONE [Concomitant]
     Active Substance: HYDROMORPHONE
     Dosage: 8 MG, 3X/DAY (DOSAGE: 1-1-1)
     Route: 048

REACTIONS (4)
  - Pancytopenia [Recovering/Resolving]
  - Product use in unapproved indication [Unknown]
  - Off label use [Unknown]
  - Antibiotic level above therapeutic [Recovered/Resolved]
